FAERS Safety Report 10044444 (Version 1)
Quarter: 2014Q1

REPORT INFORMATION
  Report Type: Spontaneous
  Country: CA (occurrence: CA)
  Receive Date: 20140328
  Receipt Date: 20140328
  Transmission Date: 20141002
  Serious: Yes (Other)
  Sender: FDA-Public Use
  Company Number: CA-SA-2014SA037907

PATIENT
  Age: 51 Year
  Sex: Female

DRUGS (1)
  1. CEREZYME [Suspect]
     Indication: GAUCHER^S DISEASE
     Dosage: DOSE:2000 UNIT(S)
     Route: 042
     Dates: start: 201310

REACTIONS (2)
  - Conjunctivitis [Not Recovered/Not Resolved]
  - Nasopharyngitis [Recovering/Resolving]
